FAERS Safety Report 20378872 (Version 1)
Quarter: 2022Q1

REPORT INFORMATION
  Report Type: Spontaneous
  Country: CN (occurrence: CN)
  Receive Date: 20220126
  Receipt Date: 20220126
  Transmission Date: 20220424
  Serious: Yes (Hospitalization)
  Sender: FDA-Public Use
  Company Number: CN-PFIZER INC-202200064697

PATIENT
  Age: 52 Year
  Sex: Female
  Weight: 64 kg

DRUGS (2)
  1. IBRANCE [Suspect]
     Active Substance: PALBOCICLIB
     Indication: Symptomatic treatment
     Dosage: 125 MG, 1X/DAY
     Route: 048
     Dates: start: 20211117, end: 20211118
  2. HERCEPTIN [Suspect]
     Active Substance: TRASTUZUMAB
     Indication: Symptomatic treatment
     Dosage: 1 CYCLE
     Route: 041
     Dates: start: 20211117, end: 20211117

REACTIONS (3)
  - Asthenia [Unknown]
  - Abdominal pain [Unknown]
  - Hepatic function abnormal [Unknown]

NARRATIVE: CASE EVENT DATE: 20211207
